FAERS Safety Report 25480621 (Version 1)
Quarter: 2025Q2

REPORT INFORMATION
  Report Type: Spontaneous
  Country: US (occurrence: US)
  Receive Date: 20250625
  Receipt Date: 20250625
  Transmission Date: 20250716
  Serious: Yes (Other)
  Sender: TEVA
  Company Number: US-TEVA-VS-3343880

PATIENT
  Sex: Female

DRUGS (2)
  1. UZEDY [Suspect]
     Active Substance: RISPERIDONE
     Indication: Product used for unknown indication
     Dosage: 125/0.35MG/ML
     Route: 065
  2. UZEDY [Suspect]
     Active Substance: RISPERIDONE
     Dosage: 100/0.28MG/ML
     Route: 065

REACTIONS (1)
  - Akathisia [Unknown]
